FAERS Safety Report 15234735 (Version 3)
Quarter: 2018Q3

REPORT INFORMATION
  Report Type: Spontaneous
  Country: ES (occurrence: ES)
  Receive Date: 20180803
  Receipt Date: 20180821
  Transmission Date: 20181010
  Serious: Yes (Hospitalization)
  Sender: FDA-Public Use
  Company Number: ES-B.I. PHARMACEUTICALS,INC./RIDGEFIELD-2018-BI-037154

PATIENT
  Age: 73 Year
  Sex: Male

DRUGS (2)
  1. OFEV [Suspect]
     Active Substance: NINTEDANIB
     Indication: IDIOPATHIC PULMONARY FIBROSIS
     Route: 065
     Dates: start: 20180320, end: 20180417
  2. OFEV [Suspect]
     Active Substance: NINTEDANIB
     Route: 065
     Dates: start: 20180417, end: 20180515

REACTIONS (4)
  - Dyspnoea [Unknown]
  - Transaminases increased [Recovered/Resolved]
  - Idiopathic pulmonary fibrosis [Recovered/Resolved]
  - Aortic valve disease mixed [Not Recovered/Not Resolved]

NARRATIVE: CASE EVENT DATE: 20180417
